FAERS Safety Report 8273228-0 (Version None)
Quarter: 2012Q2

REPORT INFORMATION
  Report Type: 
  Country: None (occurrence: None)
  Receive Date: 20120411
  Receipt Date: 20120405
  Transmission Date: 20120825
  Serious: Yes (Other)
  Sender: FDA-Public Use
  Company Number: US-PFIZER INC-2012024701

PATIENT
  Sex: Male

DRUGS (7)
  1. CHANTIX [Suspect]
     Indication: SMOKING CESSATION THERAPY
     Dosage: 0.5MG/1.0MG, UNK
     Dates: start: 20070901, end: 20080301
  2. ZYPREXA [Concomitant]
     Indication: DEPRESSION
     Dosage: UNK
     Dates: start: 20020101, end: 20110101
  3. HYDROCODONE [Concomitant]
     Indication: PAIN
     Dosage: UNK
     Dates: start: 20020101, end: 20110101
  4. OXYCODONE [Concomitant]
     Indication: PAIN
     Dosage: UNK
     Dates: start: 20020101, end: 20110101
  5. ZOLOFT [Concomitant]
     Indication: DEPRESSION
     Dosage: UNK
     Dates: start: 20020101, end: 20110101
  6. DIAZEPAM [Concomitant]
     Indication: ANXIETY
     Dosage: UNK
     Dates: start: 20020101, end: 20110101
  7. LIPITOR [Concomitant]
     Indication: HYPERTENSION
     Dosage: UNK
     Dates: start: 20020101

REACTIONS (8)
  - SUICIDAL IDEATION [None]
  - ANXIETY [None]
  - IRRITABILITY [None]
  - DEPRESSION [None]
  - ABNORMAL BEHAVIOUR [None]
  - DELUSION [None]
  - AGGRESSION [None]
  - PSYCHOTIC DISORDER [None]
